FAERS Safety Report 6725433-X (Version None)
Quarter: 2010Q2

REPORT INFORMATION
  Report Type: 
  Country: None (occurrence: None)
  Receive Date: 20100513
  Receipt Date: 20100513
  Transmission Date: 20101027
  Serious: Yes (Other)
  Sender: FDA-Public Use
  Company Number: None

PATIENT
  Sex: Female
  Weight: 87.8 kg

DRUGS (3)
  1. EPIRUBICIN [Suspect]
     Indication: BREAST CANCER
     Dosage: 205 MG IV Q X 4 3 WEEKS
     Dates: start: 20100205
  2. CYCLOPHOSPHAMIDE [Suspect]
     Indication: BREAST CANCER
     Dosage: 1025 MG IV X4 3 WEEKS
     Dates: start: 20100205
  3. FLUOROURACIL [Concomitant]

REACTIONS (1)
  - NEUTROPENIA [None]
